FAERS Safety Report 7308804-2 (Version None)
Quarter: 2011Q1

REPORT INFORMATION
  Report Type: 
  Country: None (occurrence: None)
  Receive Date: 20110223
  Receipt Date: 20110217
  Transmission Date: 20110831
  Serious: Yes (Death)
  Sender: FDA-Public Use
  Company Number: PHHY2011MX13336

PATIENT
  Age: 69 Year
  Sex: Female

DRUGS (1)
  1. RASILEZ [Suspect]
     Indication: HYPERTENSION
     Dosage: 2 DF, QD
     Dates: start: 20100901

REACTIONS (2)
  - RENAL DISORDER [None]
  - CARDIAC ARREST [None]
